FAERS Safety Report 6375405-2 (Version None)
Quarter: 2009Q3

REPORT INFORMATION
  Report Type: 
  Country: None (occurrence: None)
  Receive Date: 20090924
  Receipt Date: 20090506
  Transmission Date: 20100115
  Serious: No
  Sender: FDA-Public Use
  Company Number: US-EISAI INC.-E2090-00724-SOL-US

PATIENT
  Sex: Female

DRUGS (4)
  1. ZONEGRAN [Suspect]
     Indication: EPILEPSY
     Route: 048
     Dates: start: 20070101
  2. TOPAMAX [Concomitant]
     Indication: EPILEPSY
     Dates: start: 20070101
  3. TOPAMAX [Concomitant]
     Dates: start: 20070701
  4. LAMICTAL [Concomitant]
     Indication: EPILEPSY

REACTIONS (2)
  - ABORTION SPONTANEOUS [None]
  - DRUG EXPOSURE DURING PREGNANCY [None]
